FAERS Safety Report 18497670 (Version 1)
Quarter: 2020Q4

REPORT INFORMATION
  Report Type: Spontaneous
  Country: IT (occurrence: IT)
  Receive Date: 20201112
  Receipt Date: 20201112
  Transmission Date: 20210114
  Serious: Yes (Other)
  Sender: FDA-Public Use
  Company Number: IT-GILEAD-2020-0503910

PATIENT
  Age: 28 Year
  Sex: Male

DRUGS (9)
  1. VEKLURY [Suspect]
     Active Substance: REMDESIVIR
     Indication: CORONAVIRUS INFECTION
     Route: 042
     Dates: start: 20201028, end: 20201102
  2. PANTOPRAZOLE [Concomitant]
     Active Substance: PANTOPRAZOLE
  3. DESAMETASONE FOSF [DEXAMETHASONE PHOSPHATE] [Concomitant]
  4. CLEXANE [Concomitant]
     Active Substance: ENOXAPARIN SODIUM
  5. CEFTRIAXONE. [Suspect]
     Active Substance: CEFTRIAXONE
     Indication: BACTERIAL INFECTION
     Route: 042
     Dates: start: 20201023, end: 20201102
  6. CLEXANE [Concomitant]
     Active Substance: ENOXAPARIN SODIUM
  7. DESAMETASONE FOSF [DEXAMETHASONE PHOSPHATE] [Concomitant]
  8. DESAMETASONE FOSF [DEXAMETHASONE PHOSPHATE] [Concomitant]
  9. CLEXANE [Concomitant]
     Active Substance: ENOXAPARIN SODIUM

REACTIONS (1)
  - Hypertransaminasaemia [Unknown]

NARRATIVE: CASE EVENT DATE: 20201102
